FAERS Safety Report 8806073 (Version 2)
Quarter: 2012Q4

REPORT INFORMATION
  Report Type: 
  Country: JP (occurrence: JP)
  Receive Date: 20120925
  Receipt Date: 20121009
  Transmission Date: 20130627
  Serious: Yes (Hospitalization)
  Sender: FDA-Public Use
  Company Number: JP-BAYER-2012-099569

PATIENT
  Age: 82 Year
  Sex: Female

DRUGS (1)
  1. ACETYLSALICYLIC ACID({=100 MG) [Suspect]
     Indication: HEADACHE
     Dosage: BID to TID
     Route: 048

REACTIONS (7)
  - Extradural haematoma [Recovered/Resolved]
  - Spinal cord compression [Recovered/Resolved]
  - Back pain [Recovered/Resolved]
  - Paraesthesia [Recovered/Resolved]
  - Muscular weakness [Recovered/Resolved]
  - Paraplegia [Recovered/Resolved]
  - Coordination abnormal [Recovered/Resolved]
